FAERS Safety Report 12646694 (Version 1)
Quarter: 2016Q3

REPORT INFORMATION
  Report Type: Spontaneous
  Country: US (occurrence: US)
  Receive Date: 20160812
  Receipt Date: 20160812
  Transmission Date: 20161109
  Serious: Yes (Other)
  Sender: FDA-Public Use
  Company Number: US-ZYDUS-011861

PATIENT
  Age: 52 Year
  Sex: Male

DRUGS (4)
  1. FLUTICASONE [Interacting]
     Active Substance: FLUTICASONE\FLUTICASONE PROPIONATE
     Indication: COLITIS ULCERATIVE
     Dosage: 50 MICROG/ACT 2 PUFFS/NOSTRILS FOR 5 YEARS
     Route: 045
  2. FLUTICASONE/FLUTICASONE PROPIONATE [Interacting]
     Active Substance: FLUTICASONE PROPIONATE
     Indication: RHINITIS ALLERGIC
     Dosage: 50 MICROG/ACT 2 PUFFS/NOSTRILS FOR 5 YEARS
     Route: 045
  3. MESALAZINE [Concomitant]
     Active Substance: MESALAMINE
     Indication: COLITIS ULCERATIVE
     Route: 065
  4. DULOXETINE/DULOXETINE HYDROCHLORIDE [Suspect]
     Active Substance: DULOXETINE HYDROCHLORIDE
     Indication: DEPRESSION
     Route: 065

REACTIONS (13)
  - Hypercorticoidism [Recovered/Resolved]
  - Weight increased [Unknown]
  - Cortisol free urine increased [Recovered/Resolved]
  - Oedema peripheral [Unknown]
  - Erythema [Unknown]
  - Myotonic dystrophy [Unknown]
  - Fatigue [Not Recovered/Not Resolved]
  - Night sweats [Unknown]
  - Drug interaction [Unknown]
  - Cushing^s syndrome [Unknown]
  - Muscular weakness [Unknown]
  - Contusion [Unknown]
  - Central obesity [Unknown]
